FAERS Safety Report 6706420-4 (Version None)
Quarter: 2010Q2

REPORT INFORMATION
  Report Type: 
  Country: None (occurrence: None)
  Receive Date: 20100503
  Receipt Date: 20100423
  Transmission Date: 20101027
  Serious: Yes (Hospitalization)
  Sender: FDA-Public Use
  Company Number: PHHO2009DE16233

PATIENT
  Sex: Male
  Weight: 69.7 kg

DRUGS (4)
  1. CERTICAN [Suspect]
     Indication: RENAL TRANSPLANT
     Dosage: 0.75 MG, BID
     Route: 048
  2. SANDIMMUNE [Concomitant]
     Indication: RENAL TRANSPLANT
  3. MYFORTIC [Concomitant]
     Indication: RENAL TRANSPLANT
  4. URBASON [Concomitant]
     Indication: RENAL TRANSPLANT

REACTIONS (1)
  - COMPLICATIONS OF TRANSPLANTED KIDNEY [None]
